FAERS Safety Report 6759489-5 (Version None)
Quarter: 2010Q2

REPORT INFORMATION
  Report Type: 
  Country: None (occurrence: None)
  Receive Date: 20100603
  Receipt Date: 20100528
  Transmission Date: 20101027
  Serious: Yes (Life-Threatening)
  Sender: FDA-Public Use
  Company Number: LEO-2010-00402

PATIENT
  Age: 50 Year
  Sex: Male

DRUGS (2)
  1. INNOHEP [Suspect]
     Indication: PHLEBITIS
     Dosage: 18000 IU, SUBCUTANEOUS
     Route: 058
     Dates: start: 20100101, end: 20100222
  2. PREVISCAN (FLUINDIONE) (20 MILLIGRAM, TABLETS) [Suspect]
     Indication: PHLEBITIS
     Dosage: 1.25 DOSAGE FORMS, ORAL
     Route: 048
     Dates: start: 20100101, end: 20100222

REACTIONS (2)
  - HAEMOTHORAX [None]
  - TUMOUR HAEMORRHAGE [None]
